FAERS Safety Report 4801781-5 (Version None)
Quarter: 2005Q4

REPORT INFORMATION
  Report Type: 
  Country: None (occurrence: None)
  Receive Date: 20051018
  Receipt Date: 20051013
  Transmission Date: 20060501
  Serious: Yes (Death)
  Sender: FDA-Public Use
  Company Number: NSADSS2001025186

PATIENT
  Sex: Male
  Weight: 108.86 kg

DRUGS (5)
  1. PROPULSID [Suspect]
     Route: 048
  2. PROPULSID [Suspect]
     Route: 048
  3. PROPULSID [Suspect]
     Route: 048
  4. PRILOSEC [Concomitant]
  5. ZOCOR [Concomitant]

REACTIONS (2)
  - DEATH [None]
  - WEIGHT INCREASED [None]
